FAERS Safety Report 16793187 (Version 1)
Quarter: 2019Q3

REPORT INFORMATION
  Report Type: Spontaneous
  Country: US (occurrence: US)
  Receive Date: 20190911
  Receipt Date: 20190911
  Transmission Date: 20191005
  Serious: No
  Sender: FDA-Public Use
  Company Number: US-BIOGEN-2018BI00633400

PATIENT
  Sex: Female

DRUGS (4)
  1. PREVACID [Concomitant]
     Active Substance: LANSOPRAZOLE
     Route: 050
  2. AVONEX [Suspect]
     Active Substance: INTERFERON BETA-1A
     Indication: MULTIPLE SCLEROSIS
     Route: 050
  3. AVONEX [Suspect]
     Active Substance: INTERFERON BETA-1A
     Route: 050
     Dates: start: 1998, end: 20181029
  4. TECFIDERA [Suspect]
     Active Substance: DIMETHYL FUMARATE
     Indication: MULTIPLE SCLEROSIS
     Route: 050

REACTIONS (10)
  - Fall [Recovered/Resolved]
  - Visual impairment [Not Recovered/Not Resolved]
  - Irritable bowel syndrome [Not Recovered/Not Resolved]
  - Tendonitis [Recovered/Resolved]
  - Gait disturbance [Recovered/Resolved]
  - Headache [Not Recovered/Not Resolved]
  - Speech disorder [Not Recovered/Not Resolved]
  - Dyskinesia [Unknown]
  - Muscle spasms [Not Recovered/Not Resolved]
  - Myalgia [Unknown]
